FAERS Safety Report 9786623 (Version 1)
Quarter: 2013Q4

REPORT INFORMATION
  Report Type: Spontaneous
  Country: US (occurrence: US)
  Receive Date: 20131227
  Receipt Date: 20131227
  Transmission Date: 20140711
  Serious: Yes (Other)
  Sender: FDA-Public Use
  Company Number: CHPA2013US018769

PATIENT
  Age: 58 Year
  Sex: Female

DRUGS (2)
  1. THERAFLU HOT LIQUID MEDICINE UNKNOWN [Suspect]
     Indication: NASOPHARYNGITIS
     Dosage: 1 DF, UNK
  2. THERAFLU HOT LIQUID MEDICINE UNKNOWN [Suspect]
     Indication: OROPHARYNGEAL PAIN

REACTIONS (2)
  - Hiatus hernia [Unknown]
  - Gastrooesophageal reflux disease [Unknown]
